FAERS Safety Report 16784480 (Version 2)
Quarter: 2019Q4

REPORT INFORMATION
  Report Type: Spontaneous
  Country: DE (occurrence: DE)
  Receive Date: 20190909
  Receipt Date: 20191023
  Transmission Date: 20200122
  Serious: Yes (Disabling, Other)
  Sender: FDA-Public Use
  Company Number: DE-SA-2019SA247024

PATIENT
  Age: 44 Year
  Sex: Female

DRUGS (2)
  1. TERIFLUNOMIDE. [Suspect]
     Active Substance: TERIFLUNOMIDE
     Indication: MULTIPLE SCLEROSIS
     Dosage: 14 MG, QD
     Route: 048
     Dates: start: 201310
  2. BOTOX [Concomitant]
     Active Substance: ONABOTULINUMTOXINA

REACTIONS (13)
  - Urge incontinence [Unknown]
  - Multiple sclerosis relapse [Unknown]
  - Resting tremor [Unknown]
  - Ataxia [Unknown]
  - Dysarthria [Unknown]
  - Condition aggravated [Unknown]
  - Detrusor sphincter dyssynergia [Unknown]
  - Eye movement disorder [Unknown]
  - Disability [Unknown]
  - Vertigo [Unknown]
  - Fatigue [Unknown]
  - Paraparesis [Unknown]
  - Pollakiuria [Unknown]

NARRATIVE: CASE EVENT DATE: 201310
